FAERS Safety Report 5841966-2 (Version None)
Quarter: 2008Q3

REPORT INFORMATION
  Report Type: 
  Country: None (occurrence: None)
  Receive Date: 20080812
  Receipt Date: 20080728
  Transmission Date: 20090109
  Serious: Yes (Hospitalization, Other)
  Sender: FDA-Public Use
  Company Number: BE-ABBOTT-08P-013-0446397-00

PATIENT
  Sex: Male

DRUGS (5)
  1. KALETRA [Suspect]
     Indication: DRUG USE FOR UNKNOWN INDICATION
  2. BACTRIM [Suspect]
     Indication: DRUG USE FOR UNKNOWN INDICATION
  3. ZIDOVUDINE [Suspect]
     Indication: DRUG USE FOR UNKNOWN INDICATION
  4. LAMIVUDINE + ZIDOVUDINE [Concomitant]
     Indication: DRUG USE FOR UNKNOWN INDICATION
     Dosage: 2 TABLETS DAILY
  5. BACTRIM [Concomitant]

REACTIONS (14)
  - ANAEMIA [None]
  - ANOGENITAL WARTS [None]
  - ANOREXIA [None]
  - FUNGAL OESOPHAGITIS [None]
  - GASTROINTESTINAL DISORDER [None]
  - GINGIVITIS ULCERATIVE [None]
  - HEADACHE [None]
  - HERPES VIRUS INFECTION [None]
  - LEUKOPLAKIA ORAL [None]
  - MACROCYTOSIS [None]
  - OESOPHAGEAL CANDIDIASIS [None]
  - PYREXIA [None]
  - SINUSITIS [None]
  - STAPHYLOCOCCAL SEPSIS [None]
